FAERS Safety Report 25549233 (Version 1)
Quarter: 2025Q3

REPORT INFORMATION
  Report Type: Spontaneous
  Country: US (occurrence: US)
  Receive Date: 20250714
  Receipt Date: 20250714
  Transmission Date: 20251021
  Serious: No
  Sender: ASTELLAS
  Company Number: US-ASTELLAS-2025-AER-015000

PATIENT
  Age: 80 Year
  Sex: Male

DRUGS (3)
  1. MYRBETRIQ [Suspect]
     Active Substance: MIRABEGRON
     Indication: Product used for unknown indication
     Dosage: 50MG DAILY
     Route: 050
  2. MYRBETRIQ [Suspect]
     Active Substance: MIRABEGRON
     Route: 050
  3. MYRBETRIQ [Suspect]
     Active Substance: MIRABEGRON
     Route: 050

REACTIONS (2)
  - Accidental overdose [Unknown]
  - Inappropriate schedule of product administration [Unknown]
